FAERS Safety Report 24976732 (Version 1)
Quarter: 2025Q1

REPORT INFORMATION
  Report Type: Spontaneous
  Country: US (occurrence: US)
  Receive Date: 20250217
  Receipt Date: 20250217
  Transmission Date: 20250409
  Serious: Yes (Other)
  Sender: AMGEN
  Company Number: US-AMGEN-USASP2025028561

PATIENT
  Age: 13 Year
  Sex: Female

DRUGS (7)
  1. INFLIXIMAB [Suspect]
     Active Substance: INFLIXIMAB
     Indication: Iridocyclitis
     Route: 065
  2. INFLIXIMAB [Suspect]
     Active Substance: INFLIXIMAB
     Indication: Uveitis
  3. ADALIMUMAB [Suspect]
     Active Substance: ADALIMUMAB
     Indication: Iridocyclitis
     Route: 065
  4. ADALIMUMAB [Suspect]
     Active Substance: ADALIMUMAB
     Indication: Uveitis
  5. TOCILIZUMAB [Concomitant]
     Active Substance: TOCILIZUMAB
     Indication: Iridocyclitis
     Dosage: 8.2 MILLIGRAM/KILOGRAM, Q4WK
     Route: 040
     Dates: start: 202102
  6. TOCILIZUMAB [Concomitant]
     Active Substance: TOCILIZUMAB
     Indication: Uveitis
     Dosage: 162 MILLIGRAM, Q2WK
     Route: 058
     Dates: start: 202108
  7. TOCILIZUMAB [Concomitant]
     Active Substance: TOCILIZUMAB
     Dosage: 8 MILLIGRAM/KILOGRAM, Q4WK
     Route: 040
     Dates: start: 202205

REACTIONS (3)
  - Uveitis [Recovering/Resolving]
  - Drug ineffective [Unknown]
  - Off label use [Unknown]
